FAERS Safety Report 22223706 (Version 2)
Quarter: 2023Q2

REPORT INFORMATION
  Report Type: Spontaneous
  Country: JP (occurrence: JP)
  Receive Date: 20230418
  Receipt Date: 20230620
  Transmission Date: 20230721
  Serious: Yes (Other)
  Sender: FDA-Public Use
  Company Number: JP-OTSUKA-2023_003761

PATIENT
  Sex: Male

DRUGS (2)
  1. SAMSCA [Suspect]
     Active Substance: TOLVAPTAN
     Indication: Hepatic cirrhosis
     Dosage: HALF TABLET, UNK
     Route: 048
  2. SAMSCA [Suspect]
     Active Substance: TOLVAPTAN
     Dosage: 7.5MG/DAY
     Route: 048

REACTIONS (2)
  - Blood glucose increased [Recovering/Resolving]
  - Thirst [Recovered/Resolved]
